FAERS Safety Report 15900979 (Version 1)
Quarter: 2019Q1

REPORT INFORMATION
  Report Type: Spontaneous
  Country: US (occurrence: US)
  Receive Date: 20190110
  Receipt Date: 20190110
  Transmission Date: 20190417
  Serious: Yes (Disabling)
  Sender: FDA-Public Use
  Company Number: None

PATIENT
  Age: 39 Year
  Sex: Male
  Weight: 98.1 kg

DRUGS (2)
  1. MOXIFLOXACIN. [Suspect]
     Active Substance: MOXIFLOXACIN
  2. CIPROFLOXACIN. [Suspect]
     Active Substance: CIPROFLOXACIN
     Indication: BACTERIAL PROSTATITIS
     Dosage: ?          QUANTITY:1 CAPSULE(S);?
     Route: 048

REACTIONS (17)
  - Cognitive disorder [None]
  - Arthralgia [None]
  - Gait disturbance [None]
  - Hypoaesthesia [None]
  - Musculoskeletal discomfort [None]
  - Myalgia [None]
  - Fatigue [None]
  - Pain in extremity [None]
  - Tendon pain [None]
  - Dizziness [None]
  - Feeling abnormal [None]
  - Visual impairment [None]
  - Heart rate irregular [None]
  - Insomnia [None]
  - Toxicity to various agents [None]
  - Musculoskeletal stiffness [None]
  - Memory impairment [None]

NARRATIVE: CASE EVENT DATE: 20180103
